FAERS Safety Report 5175172-4 (Version None)
Quarter: 2006Q4

REPORT INFORMATION
  Report Type: 
  Country: None (occurrence: None)
  Receive Date: 20061214
  Receipt Date: 20051215
  Transmission Date: 20070319
  Serious: No
  Sender: FDA-Public Use
  Company Number: US-AMGEN-KDL161815

PATIENT
  Sex: Female

DRUGS (4)
  1. ENBREL [Suspect]
     Indication: PSORIASIS
     Route: 058
     Dates: start: 20041230
  2. CLOBETASOL PROPIONATE [Concomitant]
     Route: 065
  3. ELOCON [Concomitant]
     Route: 065
  4. HYDROCORTISONE [Concomitant]
     Route: 065

REACTIONS (3)
  - ALOPECIA [None]
  - CONDITION AGGRAVATED [None]
  - PSORIASIS [None]
